FAERS Safety Report 8414527-9 (Version None)
Quarter: 2012Q2

REPORT INFORMATION
  Report Type: 
  Country: None (occurrence: None)
  Receive Date: 20120605
  Receipt Date: 20120529
  Transmission Date: 20120825
  Serious: Yes (Other)
  Sender: FDA-Public Use
  Company Number: US-PFIZER INC-2012129892

PATIENT

DRUGS (1)
  1. DILANTIN [Suspect]
     Dosage: UNK

REACTIONS (3)
  - IMPAIRED GASTRIC EMPTYING [None]
  - ANTICONVULSANT DRUG LEVEL ABNORMAL [None]
  - ANTICONVULSANT DRUG LEVEL BELOW THERAPEUTIC [None]
